FAERS Safety Report 5153023-1 (Version None)
Quarter: 2006Q4

REPORT INFORMATION
  Report Type: 
  Country: None (occurrence: None)
  Receive Date: 20061117
  Receipt Date: 20060926
  Transmission Date: 20070319
  Serious: Yes (Hospitalization)
  Sender: FDA-Public Use
  Company Number: AU-AMGEN-US194710

PATIENT
  Sex: Male

DRUGS (5)
  1. AMG 706 [Suspect]
     Indication: METASTATIC NEOPLASM
     Route: 048
     Dates: start: 20060921
  2. PANITUMUMAB [Suspect]
     Indication: METASTATIC NEOPLASM
     Route: 042
     Dates: start: 20060919
  3. IRINOTECAN HCL [Suspect]
     Route: 042
  4. LEUCOVORIN CALCIUM [Suspect]
     Route: 042
  5. FLUOROURACIL [Suspect]
     Route: 042

REACTIONS (4)
  - BACK PAIN [None]
  - CLOSTRIDIAL INFECTION [None]
  - INFECTION [None]
  - PYREXIA [None]
